FAERS Safety Report 19475604 (Version 1)
Quarter: 2021Q2

REPORT INFORMATION
  Report Type: Spontaneous
  Country: DE (occurrence: DE)
  Receive Date: 20210630
  Receipt Date: 20210630
  Transmission Date: 20210717
  Serious: Yes (Hospitalization, Other)
  Sender: FDA-Public Use
  Company Number: DE-AUROBINDO-AUR-APL-2021-026942

PATIENT
  Age: 77 Year
  Sex: Male
  Weight: 100 kg

DRUGS (18)
  1. FLUOROURACIL. [Suspect]
     Active Substance: FLUOROURACIL
     Dosage: 3300 MILLIGRAM
     Route: 042
     Dates: start: 20170921
  2. CAPECITABINE. [Concomitant]
     Active Substance: CAPECITABINE
     Indication: COLORECTAL CANCER
     Dosage: 2500 MILLIGRAM (2500 MILLIGRAM DAY1?14 PER CYCLE)
     Route: 048
     Dates: start: 20180626
  3. OMEPRAZOLE. [Concomitant]
     Active Substance: OMEPRAZOLE
     Indication: PRODUCT USED FOR UNKNOWN INDICATION
     Dosage: 20 MILLIGRAM (20 MILLIGRAM DAILY)
     Route: 048
     Dates: start: 20180925
  4. RANITIDIN [Concomitant]
     Active Substance: RANITIDINE HYDROCHLORIDE
     Indication: PROPHYLAXIS
     Dosage: 50 MILLIGRAM, CYCLICAL (50 MILLIGRAM I PER CYCLE)
     Route: 042
     Dates: start: 20170921
  5. IRINOTECAN [Suspect]
     Active Substance: IRINOTECAN
     Dosage: 90 MILLIGRAM
     Route: 065
     Dates: start: 20170914
  6. FLUOROURACIL. [Suspect]
     Active Substance: FLUOROURACIL
     Indication: COLORECTAL CANCER METASTATIC
     Dosage: 2200 MILLIGRAM
     Route: 042
     Dates: start: 20170914
  7. IRINOTECAN [Suspect]
     Active Substance: IRINOTECAN
     Indication: PRODUCT USED FOR UNKNOWN INDICATION
     Dosage: 130 MILLIGRAM
     Route: 065
     Dates: start: 20170921
  8. ATROPINE. [Concomitant]
     Active Substance: ATROPINE
     Indication: PROPHYLAXIS
     Dosage: 0.25 MILLIGRAM I PER CYCLE
     Route: 058
     Dates: start: 20170906
  9. DEXAMETHASON [Concomitant]
     Active Substance: DEXAMETHASONE
     Indication: PROPHYLAXIS
     Dosage: 8 MILLIGRAM, CYCLICAL (8 MILLIGRAM I PER CYCLE)
     Route: 042
     Dates: start: 20170906
  10. GRANISETRON [Concomitant]
     Active Substance: GRANISETRON
     Indication: PROPHYLAXIS
     Dosage: 1 MILLIGRAM, CYCLICAL (1 MILLIGRAM  PER CYCLE)
     Route: 042
     Dates: start: 20170906
  11. VECTIBIX [Suspect]
     Active Substance: PANITUMUMAB
     Indication: PRODUCT USED FOR UNKNOWN INDICATION
     Dosage: 600 MILLIGRAM
     Route: 042
     Dates: start: 20171012
  12. VECTIBIX [Suspect]
     Active Substance: PANITUMUMAB
     Indication: COLORECTAL CANCER METASTATIC
     Dosage: 100 MILLIGRAM
     Route: 042
     Dates: start: 20170928
  13. CANDESARTAN. [Concomitant]
     Active Substance: CANDESARTAN
     Indication: HYPERTENSION
     Dosage: 16 MILLIGRAM (16 MILLIGRAM DAILY)
     Route: 048
  14. CORIFEO [Concomitant]
     Indication: HYPERTENSION
     Dosage: DAILY
     Route: 048
  15. IRINOTECAN [Suspect]
     Active Substance: IRINOTECAN
     Indication: COLORECTAL CANCER METASTATIC
     Dosage: 45 MILLIGRAM
     Route: 065
     Dates: start: 20170906
  16. FOLINIC ACID [Suspect]
     Active Substance: LEUCOVORIN
     Indication: COLORECTAL CANCER METASTATIC
     Dosage: 1000 MILLIGRAM
     Route: 065
     Dates: start: 20170914
  17. CLEMASTINE [Concomitant]
     Active Substance: CLEMASTINE
     Indication: PROPHYLAXIS
     Dosage: 2 MILLIGRAM (2 MILLIGRAM PER CYCLE)
     Route: 042
     Dates: start: 20170921
  18. MINOCYCLINE [Concomitant]
     Active Substance: MINOCYCLINE HYDROCHLORIDE
     Indication: SKIN IRRITATION
     Dosage: 100 MILLIGRAM, ONCE A DAY (100 MILLIGRAM DAILY)
     Route: 048
     Dates: start: 20180816

REACTIONS (1)
  - Atrial fibrillation [Recovered/Resolved]

NARRATIVE: CASE EVENT DATE: 20210525
